FAERS Safety Report 9306553 (Version 1)
Quarter: 2013Q2

REPORT INFORMATION
  Report Type: Spontaneous
  Country: US (occurrence: US)
  Receive Date: 20130523
  Receipt Date: 20130523
  Transmission Date: 20140414
  Serious: Yes (Hospitalization)
  Sender: FDA-Public Use
  Company Number: US-INCYTE CORPORATION-2013IN000971

PATIENT
  Sex: Male

DRUGS (1)
  1. JAKAFI [Suspect]
     Indication: LYMPHOCYTOSIS
     Dosage: 20 MG, BID
     Route: 048
     Dates: start: 20130123

REACTIONS (2)
  - Hospitalisation [Unknown]
  - Haematoma [Not Recovered/Not Resolved]
